FAERS Safety Report 8846206 (Version 1)
Quarter: 2012Q4

REPORT INFORMATION
  Report Type: 
  Country: US (occurrence: US)
  Receive Date: 20121017
  Receipt Date: 20121017
  Transmission Date: 20130627
  Serious: Yes (Death)
  Sender: FDA-Public Use
  Company Number: US-ACTELION-A-NJ2012-72642

PATIENT
  Age: 69 Year
  Sex: Female

DRUGS (4)
  1. TRACLEER [Suspect]
     Indication: PULMONARY ARTERIAL HYPERTENSION
     Dosage: UNK
     Route: 048
  2. REMODULIN [Concomitant]
     Dosage: UNK
     Dates: start: 201110
  3. COUMADIN [Concomitant]
  4. SILDENAFIL [Concomitant]

REACTIONS (2)
  - Brain neoplasm [Fatal]
  - Infusion site pain [Unknown]
